FAERS Safety Report 11045243 (Version 3)
Quarter: 2016Q2

REPORT INFORMATION
  Report Type: Spontaneous
  Country: US (occurrence: US)
  Receive Date: 20150417
  Receipt Date: 20160401
  Transmission Date: 20160815
  Serious: Yes (Hospitalization, Other)
  Sender: FDA-Public Use
  Company Number: US-PFIZER INC-2015125596

PATIENT
  Sex: Male

DRUGS (1)
  1. LIPITOR [Suspect]
     Active Substance: ATORVASTATIN CALCIUM
     Dosage: UNK

REACTIONS (6)
  - Muscular weakness [Unknown]
  - Muscle spasms [Unknown]
  - Pain in extremity [Unknown]
  - Drug ineffective [Unknown]
  - Abasia [Unknown]
  - Muscle atrophy [Unknown]
